FAERS Safety Report 11362332 (Version 3)
Quarter: 2015Q4

REPORT INFORMATION
  Report Type: Spontaneous
  Country: US (occurrence: US)
  Receive Date: 20150810
  Receipt Date: 20151001
  Transmission Date: 20160304
  Serious: No
  Sender: FDA-Public Use
  Company Number: US-TEVA-584542ACC

PATIENT
  Age: 33 Year
  Sex: Female
  Weight: 67.19 kg

DRUGS (1)
  1. PARAGARD T 380A [Suspect]
     Active Substance: COPPER
     Indication: CONTRACEPTION
     Dates: start: 20150729, end: 20150729

REACTIONS (5)
  - Abdominal pain lower [Not Recovered/Not Resolved]
  - Complication of device insertion [Recovered/Resolved]
  - Vaginal haemorrhage [Not Recovered/Not Resolved]
  - Exposure during breast feeding [Unknown]
  - Pelvic pain [Not Recovered/Not Resolved]

NARRATIVE: CASE EVENT DATE: 20150729
